FAERS Safety Report 14906145 (Version 1)
Quarter: 2018Q2

REPORT INFORMATION
  Report Type: Spontaneous
  Country: US (occurrence: US)
  Receive Date: 20180517
  Receipt Date: 20180517
  Transmission Date: 20180711
  Serious: No
  Sender: FDA-Public Use
  Company Number: US-SA-2018SA070382

PATIENT
  Sex: Male

DRUGS (2)
  1. SOLOSTAR [Suspect]
     Active Substance: DEVICE
     Dates: start: 201802
  2. LANTUS SOLOSTAR [Suspect]
     Active Substance: INSULIN GLARGINE
     Route: 051
     Dates: start: 201802

REACTIONS (2)
  - Glycosylated haemoglobin increased [Unknown]
  - Product storage error [Unknown]

NARRATIVE: CASE EVENT DATE: 201803
